FAERS Safety Report 14026477 (Version 10)
Quarter: 2018Q4

REPORT INFORMATION
  Report Type: Spontaneous
  Country: US (occurrence: US)
  Receive Date: 20170929
  Receipt Date: 20181115
  Transmission Date: 20190204
  Serious: Yes (Hospitalization, Other)
  Sender: FDA-Public Use
  Company Number: US-ACTELION-A-NJ2017-159773

PATIENT
  Age: 65 Year
  Sex: Female

DRUGS (18)
  1. SILDENAFIL. [Concomitant]
     Active Substance: SILDENAFIL
     Dosage: 20 MG, TID
  2. ALLOPURINOL. [Concomitant]
     Active Substance: ALLOPURINOL
     Dosage: 100 MG, UNK
     Dates: start: 20180325
  3. VENTAVIS [Suspect]
     Active Substance: ILOPROST
     Indication: PULMONARY ARTERIAL HYPERTENSION
     Dosage: 20 MCG/ML, 6 TIMES DAILY
     Route: 055
     Dates: start: 20121127
  4. HYDROCODONE/ACETAMINOPHEN [Concomitant]
     Active Substance: ACETAMINOPHEN\HYDROCODONE
     Dosage: UNK
     Dates: start: 20180325
  5. SIMETHICONE (DIMETHICONE) [Concomitant]
     Active Substance: DIMETHICONE
     Dosage: 80 MG, UNK
     Dates: start: 20180325
  6. VENTAVIS [Suspect]
     Active Substance: ILOPROST
     Dosage: 5 MCG, Q3HRS
     Route: 055
  7. ALPRAZOLAM. [Concomitant]
     Active Substance: ALPRAZOLAM
     Dosage: 1 MG, UNK
     Dates: start: 20180325
  8. DICLOFENAC SODIUM. [Concomitant]
     Active Substance: DICLOFENAC SODIUM
     Dosage: 1% GEL
     Dates: start: 20180325
  9. LEVOTHYROXINE. [Concomitant]
     Active Substance: LEVOTHYROXINE
     Dosage: 150 MCG, UNK
     Dates: start: 20180325
  10. LISINOPRIL. [Concomitant]
     Active Substance: LISINOPRIL
     Dosage: 2.5 MG, QD
     Dates: start: 20180325
  11. OMEPRAZOLE. [Concomitant]
     Active Substance: OMEPRAZOLE
     Dosage: 20 MG, UNK
     Dates: start: 20180325
  12. OPSUMIT [Suspect]
     Active Substance: MACITENTAN
     Indication: PULMONARY ARTERIAL HYPERTENSION
     Dosage: 10 MG, QD
     Route: 048
     Dates: start: 20160813
  13. VENTAVIS [Suspect]
     Active Substance: ILOPROST
     Dosage: 5 MCG, 5 TIMES DAILY
     Route: 055
     Dates: start: 20121119
  14. CYANOCOBALAMIN. [Concomitant]
     Active Substance: CYANOCOBALAMIN
     Dosage: 100 MG, UNK
     Dates: start: 20180325
  15. OMEGA-3-ACID ETHYL ESTER [Concomitant]
     Active Substance: OMEGA-3-ACID ETHYL ESTERS
     Dosage: UNK
     Dates: start: 20180325
  16. VENTAVIS [Suspect]
     Active Substance: ILOPROST
     Dosage: 6 TIMES DAILY
     Route: 055
  17. ALBUTEROL HFA [Concomitant]
     Active Substance: ALBUTEROL SULFATE
     Dosage: 90 MCG ACTUATION INHALER
     Route: 055
     Dates: start: 20180325
  18. GLUCOSAMINE CHONDROITIN [Concomitant]
     Active Substance: CHONDROITIN SULFATE (BOVINE)\GLUCOSAMINE HYDROCHLORIDE
     Dosage: UNK
     Dates: start: 20180325

REACTIONS (19)
  - Headache [Unknown]
  - Malaise [Unknown]
  - Oxygen saturation decreased [Recovering/Resolving]
  - Hypotension [Recovered/Resolved]
  - Product dose omission [Recovered/Resolved]
  - Dyspnoea [Recovering/Resolving]
  - Pain [Unknown]
  - Urinary tract infection [Unknown]
  - Platelet count decreased [Unknown]
  - Hypoxia [Recovered/Resolved]
  - Flatulence [Unknown]
  - Inappropriate schedule of product administration [Unknown]
  - Ear pain [Unknown]
  - Asthenia [Not Recovered/Not Resolved]
  - Chest pain [Recovering/Resolving]
  - Acute respiratory failure [Recovered/Resolved]
  - Tinnitus [Not Recovered/Not Resolved]
  - Biopsy bone marrow normal [Unknown]
  - Skin mass [Unknown]

NARRATIVE: CASE EVENT DATE: 20171229
